FAERS Safety Report 18408249 (Version 1)
Quarter: 2020Q4

REPORT INFORMATION
  Report Type: Spontaneous
  Country: US (occurrence: US)
  Receive Date: 20201020
  Receipt Date: 20201020
  Transmission Date: 20210114
  Serious: Yes (Death, Other)
  Sender: FDA-Public Use
  Company Number: US-PURDUE-USA-2020-0170953

PATIENT
  Age: 49 Year
  Sex: Male

DRUGS (13)
  1. DIPHENHYDRAMINE                    /00000402/ [Suspect]
     Active Substance: DIPHENHYDRAMINE
     Indication: PRODUCT USED FOR UNKNOWN INDICATION
  2. OXYCONTIN [Suspect]
     Active Substance: OXYCODONE HYDROCHLORIDE
     Indication: PAIN IN EXTREMITY
  3. OXYCODONE HCL CR TABLETS (SIMILAR TO NDA 22-272) [Suspect]
     Active Substance: OXYCODONE HYDROCHLORIDE
     Indication: BACK PAIN
     Dosage: 1-2 TABLETS, Q4- 6H
     Route: 048
  4. OXYCODONE HCL CR TABLETS (SIMILAR TO NDA 22-272) [Suspect]
     Active Substance: OXYCODONE HYDROCHLORIDE
     Indication: PAIN MANAGEMENT
  5. MORPHINE SULFATE EXTENDED-RELEASE TABLETS (RHODES 74-769) [Suspect]
     Active Substance: MORPHINE SULFATE
     Indication: PAIN IN EXTREMITY
  6. MS CONTIN [Suspect]
     Active Substance: MORPHINE SULFATE
     Indication: PAIN IN EXTREMITY
  7. OXYCODONE HCL CR TABLETS (SIMILAR TO NDA 22-272) [Suspect]
     Active Substance: OXYCODONE HYDROCHLORIDE
     Indication: PAIN IN EXTREMITY
  8. MS CONTIN [Suspect]
     Active Substance: MORPHINE SULFATE
     Indication: BACK PAIN
     Route: 048
  9. MS CONTIN [Suspect]
     Active Substance: MORPHINE SULFATE
     Indication: PAIN MANAGEMENT
  10. MORPHINE SULFATE EXTENDED-RELEASE TABLETS (RHODES 74-769) [Suspect]
     Active Substance: MORPHINE SULFATE
     Indication: BACK PAIN
     Route: 048
  11. OXYCONTIN [Suspect]
     Active Substance: OXYCODONE HYDROCHLORIDE
     Indication: BACK PAIN
     Dosage: 1-2 TABLETS, Q4- 6H
     Route: 048
  12. OXYCONTIN [Suspect]
     Active Substance: OXYCODONE HYDROCHLORIDE
     Indication: PAIN MANAGEMENT
  13. MORPHINE SULFATE EXTENDED-RELEASE TABLETS (RHODES 74-769) [Suspect]
     Active Substance: MORPHINE SULFATE
     Indication: PAIN MANAGEMENT

REACTIONS (10)
  - Overdose [Unknown]
  - Osteomyelitis [Unknown]
  - Localised infection [Unknown]
  - Poor quality sleep [Unknown]
  - Septic rash [Unknown]
  - Peripheral swelling [Unknown]
  - Drug dependence [Unknown]
  - Back pain [Unknown]
  - Toe amputation [Not Recovered/Not Resolved]
  - Toxicity to various agents [Fatal]

NARRATIVE: CASE EVENT DATE: 2017
